FAERS Safety Report 4862270-5 (Version None)
Quarter: 2005Q4

REPORT INFORMATION
  Report Type: 
  Country: None (occurrence: None)
  Receive Date: 20051201
  Receipt Date: 20050812
  Transmission Date: 20060501
  Serious: No
  Sender: FDA-Public Use
  Company Number: 2005PV001149

PATIENT
  Sex: Male

DRUGS (11)
  1. BYETTA [Suspect]
     Indication: DIABETES MELLITUS NON-INSULIN-DEPENDENT
     Dosage: 5 MCG; BID; SC
     Route: 058
     Dates: start: 20050707
  2. GLUCOPHAGE [Concomitant]
  3. GLUCOTROL [Concomitant]
  4. NORVASC [Concomitant]
  5. ZESTRIL [Concomitant]
  6. TRICOR [Concomitant]
  7. ALLEGRA [Concomitant]
  8. WELLBUTRIN [Concomitant]
  9. VICODIN [Concomitant]
  10. IMODIUM A-D [Concomitant]
  11. PRILOSEC [Concomitant]

REACTIONS (4)
  - DIARRHOEA [None]
  - DYSPEPSIA [None]
  - FLATULENCE [None]
  - NAUSEA [None]
